FAERS Safety Report 18631342 (Version 1)
Quarter: 2020Q4

REPORT INFORMATION
  Report Type: Spontaneous
  Country: US (occurrence: US)
  Receive Date: 20201218
  Receipt Date: 20201218
  Transmission Date: 20210114
  Serious: Yes (Hospitalization, Other)
  Sender: FDA-Public Use
  Company Number: US-AUROBINDO-AUR-APL-2020-061337

PATIENT
  Age: 4 Decade
  Sex: Female

DRUGS (1)
  1. AMOXICILLIN. [Suspect]
     Active Substance: AMOXICILLIN
     Indication: TONSILLITIS
     Dosage: UNK
     Route: 065

REACTIONS (6)
  - Metabolic acidosis [Recovered/Resolved]
  - Renal tubular dysfunction [Recovered/Resolved]
  - Acute kidney injury [Recovered/Resolved]
  - Glycosuria [Recovered/Resolved]
  - Hypokalaemia [Recovered/Resolved]
  - Tubulointerstitial nephritis [Recovered/Resolved]
